FAERS Safety Report 17402085 (Version 1)
Quarter: 2020Q1

REPORT INFORMATION
  Report Type: Spontaneous
  Country: CA (occurrence: CA)
  Receive Date: 20200127
  Receipt Date: 20200127
  Transmission Date: 20200409
  Serious: No
  Sender: FDA-Public Use
  Company Number: None

PATIENT
  Age: 63 Year
  Sex: Female
  Weight: 56.7 kg

DRUGS (1)
  1. U DREAM [Suspect]
     Active Substance: HERBALS
     Indication: SLEEP DISORDER
     Dosage: ?          QUANTITY:1 UNK - UNKNOWN;OTHER FREQUENCY:BEDTIME ;?
     Route: 048
     Dates: start: 201907, end: 201909

REACTIONS (4)
  - Lethargy [None]
  - Nausea [None]
  - Somnolence [None]
  - Dizziness [None]

NARRATIVE: CASE EVENT DATE: 20190808
